FAERS Safety Report 9278479 (Version 6)
Quarter: 2015Q1

REPORT INFORMATION
  Report Type: Report from Study
  Country: TH (occurrence: TH)
  Receive Date: 20130508
  Receipt Date: 20150318
  Transmission Date: 20150721
  Serious: Yes (Life-Threatening, Hospitalization)
  Sender: FDA-Public Use
  Company Number: TH-ROCHE-728550

PATIENT
  Age: 50 Year
  Sex: Male
  Weight: 61 kg

DRUGS (16)
  1. BESTATIN [Concomitant]
     Route: 065
  2. JANUVIA [Concomitant]
     Active Substance: SITAGLIPTIN PHOSPHATE
     Route: 065
     Dates: start: 20120104
  3. DIAMICRON [Concomitant]
     Active Substance: GLICLAZIDE
     Dosage: REPORTED AS DIAMICRON MR
     Route: 065
  4. ASPENT [Concomitant]
     Route: 065
  5. ASPENT [Concomitant]
     Dosage: DRUG REPORTED AS ASPENT M TAB
     Route: 065
  6. PEG-INTERFERON ALFA 2A [Suspect]
     Active Substance: PEGINTERFERON ALFA-2A
     Indication: CHRONIC HEPATITIS B
     Dosage: LAST DOSE: 25 JUNE 2010
     Route: 058
  7. IMDUR [Concomitant]
     Active Substance: ISOSORBIDE MONONITRATE
     Dosage: DRUG REPORTED AS IMDUR CR
     Route: 065
  8. PRENOLOL [Concomitant]
     Route: 065
  9. FIBRIN [Concomitant]
     Route: 065
     Dates: start: 20091028
  10. LIPITOR [Concomitant]
     Active Substance: ATORVASTATIN CALCIUM
     Route: 065
     Dates: start: 20120328
  11. GLUCOPHAGE [Concomitant]
     Active Substance: METFORMIN HYDROCHLORIDE
     Route: 065
  12. VESTAR [Concomitant]
     Dosage: DRUG REPORTED AS VESTAREL MR TAB
     Route: 065
  13. PRENOLOL [Concomitant]
     Route: 065
  14. ANDRIOL [Concomitant]
     Active Substance: TESTOSTERONE UNDECANOATE
     Route: 065
  15. ANAPRIL [Concomitant]
     Active Substance: ENALAPRIL MALEATE
     Route: 065
     Dates: start: 20100902
  16. METFORMIN [Concomitant]
     Active Substance: METFORMIN HYDROCHLORIDE
     Route: 065
     Dates: start: 20120104

REACTIONS (6)
  - Angina unstable [Recovered/Resolved]
  - Aortic stenosis [Recovered/Resolved]
  - Atrioventricular block first degree [Unknown]
  - Chest pain [Recovering/Resolving]
  - Aortic aneurysm [Unknown]
  - Syncope [Recovered/Resolved]

NARRATIVE: CASE EVENT DATE: 20100902
